FAERS Safety Report 4774751-3 (Version None)
Quarter: 2005Q3

REPORT INFORMATION
  Report Type: 
  Country: None (occurrence: None)
  Receive Date: 20050921
  Receipt Date: 20050909
  Transmission Date: 20060218
  Serious: Yes (Other)
  Sender: FDA-Public Use
  Company Number: CH-GLAXOSMITHKLINE-B0393929A

PATIENT
  Age: 48 Year
  Sex: Male

DRUGS (3)
  1. PAROXETINE [Suspect]
     Indication: ANXIETY DISORDER
     Dosage: 20MG PER DAY
     Route: 048
     Dates: start: 20050817, end: 20050819
  2. LEXOTANIL (BROMAZEPAM) [Concomitant]
     Indication: DRUG USE FOR UNKNOWN INDICATION
     Dosage: .75MG TWICE PER DAY
     Route: 048
  3. MEBEVERINE HYDROCHLORIDE [Concomitant]
     Indication: DRUG USE FOR UNKNOWN INDICATION
     Dosage: 200MG PER DAY
     Route: 048

REACTIONS (4)
  - CHROMATOPSIA [None]
  - LOSS OF CONSCIOUSNESS [None]
  - SYNCOPE VASOVAGAL [None]
  - TACHYCARDIA [None]
